FAERS Safety Report 11704850 (Version 1)
Quarter: 2015Q4

REPORT INFORMATION
  Report Type: Spontaneous
  Country: US (occurrence: US)
  Receive Date: 20151106
  Receipt Date: 20151106
  Transmission Date: 20160304
  Serious: No
  Sender: FDA-Public Use
  Company Number: US-WARNER CHILCOTT, LLC-1043845

PATIENT
  Age: 71 Year
  Sex: Female

DRUGS (6)
  1. PREMARIN [Concomitant]
     Active Substance: ESTROGENS, CONJUGATED
  2. ENABLEX [Suspect]
     Active Substance: DARIFENACIN\DARIFENACIN HYDROBROMIDE
     Indication: HYPERTONIC BLADDER
     Route: 048
     Dates: start: 20141114, end: 20141114
  3. ATENOLOL. [Concomitant]
     Active Substance: ATENOLOL
  4. PRILOSEC [Concomitant]
     Active Substance: OMEPRAZOLE MAGNESIUM
  5. VITAMIN D [Concomitant]
     Active Substance: CHOLECALCIFEROL
  6. URINARY ANTISPASMODICS [Concomitant]
     Active Substance: UNSPECIFIED INGREDIENT

REACTIONS (7)
  - Dysphagia [Recovering/Resolving]
  - Tongue disorder [Recovered/Resolved]
  - Dry mouth [Recovered/Resolved]
  - Drug hypersensitivity [Unknown]
  - Dysgeusia [Not Recovered/Not Resolved]
  - Oropharyngeal pain [Not Recovered/Not Resolved]
  - Throat tightness [Recovered/Resolved]
